FAERS Safety Report 6411968-6 (Version None)
Quarter: 2009Q4

REPORT INFORMATION
  Report Type: 
  Country: None (occurrence: None)
  Receive Date: 20091023
  Receipt Date: 20091020
  Transmission Date: 20100525
  Serious: No
  Sender: FDA-Public Use
  Company Number: US-ROXANE LABORATORIES, INC.-2009-RO-01076RO

PATIENT
  Age: 36 Year
  Sex: Female

DRUGS (4)
  1. LIDOCAINE [Suspect]
     Indication: ANAESTHESIA
     Route: 042
  2. LIDOCAINE W/ EPINEPHRINE [Suspect]
     Indication: ANAESTHESIA
  3. OXYGEN [Concomitant]
     Indication: DRUG TOXICITY
  4. NORMAL SALINE [Concomitant]
     Indication: DRUG TOXICITY

REACTIONS (6)
  - BLOOD PRESSURE DECREASED [None]
  - DRUG TOXICITY [None]
  - DYSGEUSIA [None]
  - HYPERVENTILATION [None]
  - SINUS TACHYCARDIA [None]
  - TINNITUS [None]
